FAERS Safety Report 16195088 (Version 1)
Quarter: 2019Q2

REPORT INFORMATION
  Report Type: Spontaneous
  Country: US (occurrence: US)
  Receive Date: 20190415
  Receipt Date: 20190415
  Transmission Date: 20190711
  Serious: No
  Sender: FDA-Public Use
  Company Number: US-AMGEN-USASP2019057371

PATIENT

DRUGS (2)
  1. PROCRIT [Suspect]
     Active Substance: ERYTHROPOIETIN
     Indication: HAEMOGLOBIN DECREASED
     Dosage: UNK
     Route: 058
  2. PROCRIT [Suspect]
     Active Substance: ERYTHROPOIETIN
     Dosage: 16000 UNIT
     Route: 058

REACTIONS (1)
  - Haemoglobin decreased [Unknown]
